FAERS Safety Report 18207835 (Version 1)
Quarter: 2020Q3

REPORT INFORMATION
  Report Type: Report from Study
  Country: DE (occurrence: DE)
  Receive Date: 20200828
  Receipt Date: 20200828
  Transmission Date: 20201103
  Serious: Yes (Life-Threatening)
  Sender: FDA-Public Use
  Company Number: DE-PORTOLA PHARMACEUTICALS, INC.-2019DE000012

PATIENT
  Sex: Female

DRUGS (29)
  1. CEFOTAXIME [Concomitant]
     Active Substance: CEFOTAXIME SODIUM
  2. SIMVASTATIN. [Concomitant]
     Active Substance: SIMVASTATIN
     Dosage: 20 MG, QD
     Route: 048
     Dates: start: 20190219
  3. PIPERACILLIN AND TAZOBACTAM [Concomitant]
     Active Substance: PIPERACILLIN SODIUM\TAZOBACTAM SODIUM
     Dosage: 13.5 G, QD
     Route: 042
     Dates: start: 20190207
  4. RAMIPRIL. [Concomitant]
     Active Substance: RAMIPRIL
     Dosage: 5 MG, QD
     Route: 048
     Dates: start: 20190217, end: 20190220
  5. ANDEXXA [Suspect]
     Active Substance: ANDEXANET ALFA
     Indication: PROCOAGULANT THERAPY
     Dosage: 400 MG, SINGLE BOLUS
     Route: 040
     Dates: start: 20190207, end: 20190207
  6. ANDEXXA [Suspect]
     Active Substance: ANDEXANET ALFA
     Dosage: 480 MG, SINGLE INFUSION
     Route: 042
     Dates: start: 20190207, end: 20190207
  7. LAMOTRIGIN [Concomitant]
     Active Substance: LAMOTRIGINE
     Indication: EPILEPSY
     Dosage: 250 MG, QD
     Route: 048
     Dates: end: 20190207
  8. LIXIANA [Concomitant]
     Active Substance: EDOXABAN TOSYLATE
     Indication: ATRIAL FIBRILLATION
     Dosage: 60 MG, QD
     Route: 048
     Dates: start: 20190126, end: 20190207
  9. ORFIRIL [Concomitant]
     Active Substance: VALPROATE SODIUM
     Indication: EPILEPSY
     Dosage: 2400 MG, QD
     Route: 042
     Dates: start: 20190207
  10. ORFIRIL [Concomitant]
     Active Substance: VALPROATE SODIUM
     Dosage: 1800 MG, QD
     Route: 048
     Dates: start: 20190210
  11. NEXIUM MUPS                        /01479302/ [Concomitant]
     Active Substance: ESOMEPRAZOLE MAGNESIUM
     Dosage: 20 MG, QD
     Route: 048
     Dates: start: 20190220
  12. RAMIPRIL. [Concomitant]
     Active Substance: RAMIPRIL
     Indication: HYPERTENSION
     Dosage: 2.5 MG, QD
     Route: 048
     Dates: start: 20190202, end: 20190216
  13. PARACETAMOL [Concomitant]
     Active Substance: ACETAMINOPHEN
     Indication: PAIN
  14. PARACETAMOL [Concomitant]
     Active Substance: ACETAMINOPHEN
     Indication: INFLAMMATION
  15. HYDROXYCARBAMIDE [Concomitant]
     Active Substance: HYDROXYUREA
  16. TAVOR (LORAZEPAM) [Concomitant]
     Active Substance: LORAZEPAM
     Indication: EPILEPSY
     Dosage: 1 MG, QD
     Route: 042
     Dates: start: 20190207, end: 20190207
  17. PHYTOMENADIONE [Concomitant]
     Active Substance: PHYTONADIONE
  18. SCOPALAMIN [Concomitant]
  19. METOPROLOL. [Concomitant]
     Active Substance: METOPROLOL
  20. PANTOZOL [Concomitant]
     Active Substance: PANTOPRAZOLE SODIUM
     Indication: PROPHYLAXIS
     Dosage: 20 MG, QD
     Route: 048
     Dates: end: 20190207
  21. SIMVASTATIN. [Concomitant]
     Active Substance: SIMVASTATIN
     Indication: HYPERLIPIDAEMIA
     Dosage: 40 MG, QD
     Route: 048
     Dates: end: 20190207
  22. ROFERON?A [Concomitant]
     Active Substance: INTERFERON ALFA-2A
     Indication: MYELOPROLIFERATIVE NEOPLASM
     Dosage: 3 MIO I.E.
     Route: 042
     Dates: end: 20190206
  23. EBRANTIL                           /00631801/ [Concomitant]
     Active Substance: URAPIDIL
     Indication: HYPERTENSION
     Dosage: DEPENDING ON BLOOD PRESSURE
     Route: 042
     Dates: start: 20190207
  24. BISACODYL. [Concomitant]
     Active Substance: BISACODYL
  25. LAMOTRIGIN [Concomitant]
     Active Substance: LAMOTRIGINE
     Dosage: 175 MG, QD
     Route: 048
     Dates: start: 20190210
  26. BISOPROLOL [Concomitant]
     Active Substance: BISOPROLOL
     Indication: HYPERTENSION
     Dosage: 5 MG, QD
     Route: 048
     Dates: end: 20190207
  27. BISOPROLOL [Concomitant]
     Active Substance: BISOPROLOL
     Dosage: 5 MG, QD
     Route: 048
     Dates: end: 20190220
  28. TRANEXAMIC [Concomitant]
     Active Substance: TRANEXAMIC ACID
     Indication: CEREBRAL HAEMORRHAGE
     Dosage: 1 G, QD
     Route: 042
  29. NEXIUM MUPS                        /01479302/ [Concomitant]
     Active Substance: ESOMEPRAZOLE MAGNESIUM
     Indication: PROPHYLAXIS AGAINST GASTROINTESTINAL ULCER
     Dosage: 40 MG, QD
     Route: 048
     Dates: start: 20190208, end: 20190219

REACTIONS (4)
  - Deep vein thrombosis [Not Recovered/Not Resolved]
  - Depressed level of consciousness [Recovered/Resolved with Sequelae]
  - Jugular vein thrombosis [Not Recovered/Not Resolved]
  - Pulmonary embolism [Not Recovered/Not Resolved]

NARRATIVE: CASE EVENT DATE: 20190207
